FAERS Safety Report 8497073-6 (Version None)
Quarter: 2012Q3

REPORT INFORMATION
  Report Type: 
  Country: None (occurrence: None)
  Receive Date: 20120709
  Receipt Date: 20120604
  Transmission Date: 20120928
  Serious: No
  Sender: FDA-Public Use
  Company Number: US-AMGEN-USASP2012034821

PATIENT
  Sex: Female

DRUGS (3)
  1. HUMIRA [Concomitant]
     Dosage: UNK
  2. STELARA [Concomitant]
     Dosage: UNK
  3. ENBREL [Suspect]
     Indication: PSORIASIS
     Dosage: 50 MG, QWK

REACTIONS (4)
  - NASOPHARYNGITIS [None]
  - NEPHROLITHIASIS [None]
  - COUGH [None]
  - PSORIASIS [None]
